FAERS Safety Report 5946073-6 (Version None)
Quarter: 2008Q4

REPORT INFORMATION
  Report Type: 
  Country: None (occurrence: None)
  Receive Date: 20081110
  Receipt Date: 20081027
  Transmission Date: 20090506
  Serious: Yes (Death, Hospitalization)
  Sender: FDA-Public Use
  Company Number: US-ROCHE-593767

PATIENT
  Age: 60 Year
  Sex: Male

DRUGS (4)
  1. CELLCEPT [Suspect]
     Indication: DRUG USE FOR UNKNOWN INDICATION
     Route: 065
  2. INSULIN [Concomitant]
  3. CHOLESTEROL [Concomitant]
     Dosage: CHOLESTEROL MEDICATION
  4. BAYER ASA [Concomitant]

REACTIONS (1)
  - DEATH [None]
